FAERS Safety Report 9892338 (Version 1)
Quarter: 2014Q1

REPORT INFORMATION
  Report Type: Spontaneous
  Country: IL (occurrence: IL)
  Receive Date: 20140212
  Receipt Date: 20140212
  Transmission Date: 20141002
  Serious: Yes (Other)
  Sender: FDA-Public Use
  Company Number: IL-BAYER-2014-020948

PATIENT
  Age: 33 Year
  Sex: Female

DRUGS (2)
  1. MIRENA [Suspect]
     Dosage: 20 MCG/24HR, CONT
     Route: 015
     Dates: start: 20130226, end: 20140204
  2. YAZ [Suspect]
     Dosage: 1 DF, QD
     Route: 048

REACTIONS (3)
  - Genital haemorrhage [None]
  - Device dislocation [Recovered/Resolved]
  - Nervousness [None]
